FAERS Safety Report 5334258-1 (Version None)
Quarter: 2007Q2

REPORT INFORMATION
  Report Type: 
  Country: None (occurrence: None)
  Receive Date: 20070525
  Receipt Date: 20070516
  Transmission Date: 20071010
  Serious: Yes (Hospitalization)
  Sender: FDA-Public Use
  Company Number: PHBS2007JP07069

PATIENT
  Age: 71 Year
  Sex: Male
  Weight: 62 kg

DRUGS (5)
  1. VOLTAREN [Suspect]
     Indication: OSTEOARTHRITIS
     Dosage: 25 MG/DAY
     Route: 048
     Dates: start: 20070228, end: 20070407
  2. LIPOVAS [Concomitant]
     Indication: HYPERLIPIDAEMIA
     Dosage: 5 MG/DAY
     Route: 048
  3. NORVASC [Concomitant]
     Indication: HYPERTENSION
     Dosage: 5 MG/DAY
     Route: 048
  4. FLUITRAN [Concomitant]
     Indication: HYPERTENSION
     Dosage: 2 MG/DAY
     Route: 048
  5. INHIBACE [Concomitant]
     Indication: HYPERTENSION
     Dosage: 1 MG/DAY
     Route: 048

REACTIONS (8)
  - ALANINE AMINOTRANSFERASE INCREASED [None]
  - ASPARTATE AMINOTRANSFERASE INCREASED [None]
  - BLOOD LACTATE DEHYDROGENASE INCREASED [None]
  - BRONCHOALVEOLAR LAVAGE ABNORMAL [None]
  - CRYPTOGENIC ORGANISING PNEUMONIA [None]
  - DYSPNOEA [None]
  - GAMMA-GLUTAMYLTRANSFERASE INCREASED [None]
  - LYMPHOCYTE STIMULATION TEST POSITIVE [None]
